FAERS Safety Report 5760766-5 (Version None)
Quarter: 2008Q2

REPORT INFORMATION
  Report Type: 
  Country: None (occurrence: None)
  Receive Date: 20080606
  Receipt Date: 20080530
  Transmission Date: 20081010
  Serious: Yes (Hospitalization)
  Sender: FDA-Public Use
  Company Number: PHHY2008GT09340

PATIENT
  Age: 89 Year
  Sex: Male

DRUGS (1)
  1. EXELON [Suspect]
     Indication: DEMENTIA ALZHEIMER'S TYPE
     Dosage: UNK
     Route: 048
     Dates: start: 20080410

REACTIONS (9)
  - ANAEMIA [None]
  - BASOPHIL PERCENTAGE DECREASED [None]
  - BLOOD GLUCOSE INCREASED [None]
  - HAEMATOCRIT DECREASED [None]
  - HAEMOGLOBIN DECREASED [None]
  - LEUKOCYTOSIS [None]
  - LYMPHOCYTE PERCENTAGE DECREASED [None]
  - NEUTROPHILIA [None]
  - PNEUMONIA [None]
